FAERS Safety Report 6710790-0 (Version None)
Quarter: 2010Q2

REPORT INFORMATION
  Report Type: 
  Country: None (occurrence: None)
  Receive Date: 20100505
  Receipt Date: 20100428
  Transmission Date: 20101027
  Serious: Yes (Other)
  Sender: FDA-Public Use
  Company Number: US-BIOGENIDEC-2010BI012069

PATIENT
  Age: 53 Year
  Sex: Female

DRUGS (1)
  1. TYSABRI [Suspect]
     Indication: CROHN'S DISEASE
     Route: 042
     Dates: start: 20100111, end: 20100308

REACTIONS (16)
  - ABDOMINAL PAIN [None]
  - APPETITE DISORDER [None]
  - ARTHRALGIA [None]
  - BALANCE DISORDER [None]
  - DEAFNESS [None]
  - DEPRESSION [None]
  - DIARRHOEA [None]
  - DYSPHAGIA [None]
  - DYSPNOEA [None]
  - HAEMORRHAGIC DIATHESIS [None]
  - HEADACHE [None]
  - INFECTION [None]
  - MENINGIOMA [None]
  - SWELLING FACE [None]
  - VISION BLURRED [None]
  - WEIGHT ABNORMAL [None]
